FAERS Safety Report 6446924-5 (Version None)
Quarter: 2009Q4

REPORT INFORMATION
  Report Type: 
  Country: None (occurrence: None)
  Receive Date: 20091119
  Receipt Date: 20091112
  Transmission Date: 20100525
  Serious: Yes (Hospitalization)
  Sender: FDA-Public Use
  Company Number: FR-MERCK-0907FRA00064

PATIENT
  Age: 54 Year
  Sex: Female
  Weight: 35 kg

DRUGS (9)
  1. ISENTRESS [Suspect]
     Indication: HIV INFECTION
     Route: 048
     Dates: start: 20090301
  2. ZIDOVUDINE [Suspect]
     Indication: HIV INFECTION
     Route: 048
     Dates: start: 20090301
  3. SULFAMETHOXAZOLE AND TRIMETHOPRIM [Suspect]
     Indication: PROPHYLAXIS
     Route: 048
     Dates: start: 20090301
  4. FOSAMPRENAVIR CALCIUM [Suspect]
     Indication: HIV INFECTION
     Route: 048
     Dates: start: 20090301
  5. RITONAVIR [Suspect]
     Indication: HIV INFECTION
     Route: 048
     Dates: start: 20090301
  6. LEVETIRACETAM [Suspect]
     Route: 048
     Dates: start: 20090301
  7. ENFUVIRTIDE [Concomitant]
     Indication: HIV INFECTION
     Route: 051
     Dates: start: 20090301
  8. CYANOCOBALAMIN [Concomitant]
     Route: 048
     Dates: start: 20090301
  9. ZOPICLONE [Concomitant]
     Route: 048
     Dates: start: 20090301

REACTIONS (5)
  - ANAEMIA MACROCYTIC [None]
  - HERPES ZOSTER [None]
  - HYPERTHERMIA [None]
  - PYREXIA [None]
  - THROMBOCYTOPENIA [None]
